FAERS Safety Report 7151114-7 (Version None)
Quarter: 2010Q4

REPORT INFORMATION
  Report Type: 
  Country: None (occurrence: None)
  Receive Date: 20101210
  Receipt Date: 20101202
  Transmission Date: 20110411
  Serious: Yes (Other)
  Sender: FDA-Public Use
  Company Number: CA-GENZYME-THYM-1002157

PATIENT
  Age: 10 Year
  Sex: Male

DRUGS (9)
  1. THYMOGLOBULIN [Suspect]
     Indication: PROPHYLAXIS AGAINST TRANSPLANT REJECTION
  2. THYMOGLOBULIN [Suspect]
     Indication: TRANSPLANT REJECTION
  3. MYCOPHENOLATE MOFETIL [Concomitant]
     Indication: IMMUNOSUPPRESSION
     Dosage: UNK
  4. TACROLIMUS [Concomitant]
     Indication: IMMUNOSUPPRESSION
     Dosage: 0.14 NG/DL, QOD
  5. PREDNISONE [Concomitant]
     Indication: IMMUNOSUPPRESSION
  6. METHYLPREDNISOLONE [Concomitant]
     Indication: PROPHYLAXIS AGAINST TRANSPLANT REJECTION
  7. AZATHIOPRINE [Concomitant]
     Indication: IMMUNOSUPPRESSION
  8. IMMUNOGLOBULIN CYTOMEGALOVIRUS [Concomitant]
     Indication: PROPHYLAXIS
  9. GANCICLOVIR [Concomitant]
     Indication: PROPHYLAXIS

REACTIONS (5)
  - DIARRHOEA [None]
  - EPSTEIN-BARR VIRAEMIA [None]
  - EPSTEIN-BARR VIRUS ASSOCIATED LYMPHOPROLIFERATIVE DISORDER [None]
  - ORGANISING PNEUMONIA [None]
  - TRANSPLANT REJECTION [None]
